FAERS Safety Report 17131400 (Version 2)
Quarter: 2019Q4

REPORT INFORMATION
  Report Type: Spontaneous
  Country: JP (occurrence: JP)
  Receive Date: 20191209
  Receipt Date: 20191226
  Transmission Date: 20200122
  Serious: Yes (Death, Hospitalization, Other)
  Sender: FDA-Public Use
  Company Number: NVSJ2019JP003913

PATIENT
  Age: 75 Year
  Sex: Male
  Weight: 76.6 kg

DRUGS (13)
  1. PREDNISOLONE SODIUM SUCCINATE [Concomitant]
     Active Substance: PREDNISOLONE SODIUM SUCCINATE
     Indication: MANTLE CELL LYMPHOMA STAGE IV
     Dosage: 100 MG, FROM HOSPITAL DAY 1
     Route: 065
  2. VINCRISTINE SULFATE. [Concomitant]
     Active Substance: VINCRISTINE SULFATE
     Indication: MANTLE CELL LYMPHOMA STAGE IV
     Dosage: AFTER DECREASING THE DOSES TO 50% CYCLOPHOSPHAMIDE, 75% DOXORUBICIN, AND 77% VINCRISTINE
     Route: 065
  3. BISOPROLOL FUMARATE. [Suspect]
     Active Substance: BISOPROLOL FUMARATE
     Indication: PRODUCT USED FOR UNKNOWN INDICATION
     Dosage: 2.5 MG, QD (AFTER BREAKFAST)
     Route: 048
  4. FUROSEMIDE. [Concomitant]
     Active Substance: FUROSEMIDE
     Indication: PRODUCT USED FOR UNKNOWN INDICATION
     Dosage: 10 MG, QD, AFTER BREAKFAST
     Route: 048
  5. BEZAFIBRATE [Concomitant]
     Active Substance: BEZAFIBRATE
     Indication: PRODUCT USED FOR UNKNOWN INDICATION
     Dosage: 200 MG, BID, AFTER BREAKFAST AND DINNER
     Route: 048
  6. SODIUM CHLORIDE. [Concomitant]
     Active Substance: SODIUM CHLORIDE
     Indication: PRERENAL FAILURE
     Dosage: 500 ML
     Route: 065
  7. DOXORUBICIN [Suspect]
     Active Substance: DOXORUBICIN
     Indication: MANTLE CELL LYMPHOMA STAGE IV
     Dosage: AFTER DECREASING THE DOSES TO 50% CYCLOPHOSPHAMIDE, 75% DOXORUBICIN, AND 77% VINCRISTINE
     Route: 065
  8. WARFARIN [Concomitant]
     Active Substance: WARFARIN
     Indication: ATRIAL FIBRILLATION
     Dosage: 3 MG, QD, AFTER BREAKFAST
     Route: 048
  9. CANDESARTAN. [Suspect]
     Active Substance: CANDESARTAN
     Indication: PRODUCT USED FOR UNKNOWN INDICATION
     Dosage: 4 MG, QD (AFTER BREAKFAST)
     Route: 048
  10. CYCLOPHOSPHAMIDE MONOHYDRATE [Concomitant]
     Active Substance: CYCLOPHOSPHAMIDE
     Indication: MANTLE CELL LYMPHOMA STAGE IV
     Dosage: DECREASING THE DOSES TO 50% CYCLOPHOSPHAMIDE, 75% DOXORUBICIN, AND 77% VINCRISTINE
     Route: 065
  11. ALLOPURINOL. [Concomitant]
     Active Substance: ALLOPURINOL
     Indication: PRODUCT USED FOR UNKNOWN INDICATION
     Dosage: 100 MG, BID, AFTER BREAKFAST AND DINNER
     Route: 048
  12. RINGERS SOLUTION [Concomitant]
     Active Substance: CALCIUM CHLORIDE\POTASSIUM CHLORIDE\SODIUM CHLORIDE
     Indication: PRERENAL FAILURE
     Dosage: 1000 ML
     Route: 065
  13. RINGERS SOLUTION [Concomitant]
     Active Substance: CALCIUM CHLORIDE\POTASSIUM CHLORIDE\SODIUM CHLORIDE
     Dosage: 1500 ML
     Route: 065

REACTIONS (37)
  - Ventricular fibrillation [Unknown]
  - Splenomegaly [Unknown]
  - Ascites [Unknown]
  - Metastasis [Unknown]
  - Disseminated intravascular coagulation [Unknown]
  - Haemophagocytic lymphohistiocytosis [Unknown]
  - Kidney congestion [Unknown]
  - Vein disorder [Unknown]
  - Cardiac arrest [Fatal]
  - Pleural effusion [Unknown]
  - Metastases to retroperitoneum [Unknown]
  - Metastases to pancreas [Unknown]
  - Cirrhosis alcoholic [Unknown]
  - Tumour lysis syndrome [Unknown]
  - Prerenal failure [Unknown]
  - Hepatic congestion [Unknown]
  - Abdominal pain [Unknown]
  - Intestinal metastasis [Unknown]
  - Metastases to bone marrow [Unknown]
  - Duodenal ulcer haemorrhage [Unknown]
  - Diverticulum intestinal [Unknown]
  - Heart rate decreased [Fatal]
  - Renal impairment [Unknown]
  - Lymphadenopathy [Unknown]
  - Anaemia [Unknown]
  - Urine output decreased [Unknown]
  - Mantle cell lymphoma stage IV [Unknown]
  - Abdominal distension [Unknown]
  - Malignant ascites [Unknown]
  - Decreased appetite [Unknown]
  - Tumour invasion [Unknown]
  - Gastric ulcer haemorrhage [Unknown]
  - Aortic arteriosclerosis [Unknown]
  - Weight decreased [Unknown]
  - Left atrial enlargement [Unknown]
  - Metastases to spleen [Unknown]
  - Malignant neoplasm progression [Unknown]
